FAERS Safety Report 4492384-3 (Version None)
Quarter: 2004Q4

REPORT INFORMATION
  Report Type: 
  Country: None (occurrence: None)
  Receive Date: 20041102
  Receipt Date: 20041102
  Transmission Date: 20050328
  Serious: Yes (Hospitalization)
  Sender: FDA-Public Use
  Company Number: None

PATIENT
  Age: 62 Year
  Sex: Male

DRUGS (1)
  1. ABCIXIMAB [Suspect]
     Dosage: STD PCA DOSE
     Dates: start: 20041029

REACTIONS (1)
  - THROMBOCYTOPENIA [None]
